FAERS Safety Report 17590367 (Version 1)
Quarter: 2020Q1

REPORT INFORMATION
  Report Type: Spontaneous
  Country: US (occurrence: US)
  Receive Date: 20200325
  Receipt Date: 20200325
  Transmission Date: 20200409
  Serious: Yes (Death, Hospitalization)
  Sender: FDA-Public Use
  Company Number: None

PATIENT
  Age: 68 Year
  Sex: Male
  Weight: 76 kg

DRUGS (1)
  1. AMIODARONE (AMIODARONE HCL (BARR) 200MG TAB) [Suspect]
     Active Substance: AMIODARONE
     Indication: VENTRICULAR TACHYCARDIA
     Route: 048
     Dates: start: 20100615, end: 20181226

REACTIONS (8)
  - Wheezing [None]
  - Respiratory distress [None]
  - Ejection fraction decreased [None]
  - Cough [None]
  - Fall [None]
  - Toxicity to various agents [None]
  - Interstitial lung disease [None]
  - Dyspnoea [None]

NARRATIVE: CASE EVENT DATE: 20181226
